FAERS Safety Report 7488434-2 (Version None)
Quarter: 2011Q2

REPORT INFORMATION
  Report Type: 
  Country: None (occurrence: None)
  Receive Date: 20110518
  Receipt Date: 20110512
  Transmission Date: 20111010
  Serious: Yes (Other)
  Sender: FDA-Public Use
  Company Number: BR-PFIZER INC-2011102246

PATIENT
  Age: 4 Year
  Sex: Female
  Weight: 27.5 kg

DRUGS (1)
  1. SOLU-MEDROL [Suspect]
     Indication: PNEUMONIA
     Dosage: UNK
     Route: 042

REACTIONS (8)
  - HEART RATE INCREASED [None]
  - HYPERHIDROSIS [None]
  - ERYTHEMA [None]
  - SOMNOLENCE [None]
  - OEDEMA PERIPHERAL [None]
  - DRUG ADMINISTRATION ERROR [None]
  - INCORRECT ROUTE OF DRUG ADMINISTRATION [None]
  - INJECTION SITE PAIN [None]
